FAERS Safety Report 21023547 (Version 1)
Quarter: 2022Q2

REPORT INFORMATION
  Report Type: Spontaneous
  Country: HR (occurrence: HR)
  Receive Date: 20220629
  Receipt Date: 20220629
  Transmission Date: 20220721
  Serious: Yes (Life-Threatening, Other)
  Sender: FDA-Public Use
  Company Number: HR-MLMSERVICE-20220420-3510702-1

PATIENT
  Age: 15 Year
  Sex: Male

DRUGS (28)
  1. DOXORUBICIN [Suspect]
     Active Substance: DOXORUBICIN
     Indication: B precursor type acute leukaemia
     Dosage: RE-INDUCTION THERAPY
     Route: 065
  2. CYCLOPHOSPHAMIDE [Suspect]
     Active Substance: CYCLOPHOSPHAMIDE
     Indication: B precursor type acute leukaemia
     Dosage: EARLY INTENSIFICATION
     Route: 065
  3. CYCLOPHOSPHAMIDE [Suspect]
     Active Substance: CYCLOPHOSPHAMIDE
     Dosage: CONSOLIDATION
     Route: 065
  4. CYCLOPHOSPHAMIDE [Suspect]
     Active Substance: CYCLOPHOSPHAMIDE
     Dosage: RE-INDUCTION THERAPY
     Route: 065
  5. IFOSFAMIDE [Suspect]
     Active Substance: IFOSFAMIDE
     Indication: B precursor type acute leukaemia
     Dosage: CONSOLIDATION
     Route: 065
  6. THIOGUANINE ANHYDROUS [Suspect]
     Active Substance: THIOGUANINE ANHYDROUS
     Indication: B precursor type acute leukaemia
     Dosage: RE-INDUCTION THERAPY
     Route: 065
  7. DEXAMETHASONE [Suspect]
     Active Substance: DEXAMETHASONE
     Indication: B precursor type acute leukaemia
     Dosage: CONSOLIDATION
     Route: 065
  8. DEXAMETHASONE [Suspect]
     Active Substance: DEXAMETHASONE
     Dosage: RE-INDUCTION THERAPY
     Route: 065
  9. PEGASPARGASE [Suspect]
     Active Substance: PEGASPARGASE
     Indication: B precursor type acute leukaemia
     Dosage: CONSOLIDATION
     Route: 065
  10. PEGASPARGASE [Suspect]
     Active Substance: PEGASPARGASE
     Dosage: RE-INDUCTION THERAPY
     Route: 065
  11. CYTARABINE [Suspect]
     Active Substance: CYTARABINE
     Indication: B precursor type acute leukaemia
     Dosage: EARLY INTENSIFICATION
     Route: 065
  12. CYTARABINE [Suspect]
     Active Substance: CYTARABINE
     Dosage: CONSOLIDATION
     Route: 065
  13. CYTARABINE [Suspect]
     Active Substance: CYTARABINE
     Dosage: RE-INDUCTION THERAPY
     Route: 065
  14. VINCRISTINE [Suspect]
     Active Substance: VINCRISTINE
     Indication: B precursor type acute leukaemia
     Dosage: CONSOLIDATION
     Route: 065
  15. VINCRISTINE [Suspect]
     Active Substance: VINCRISTINE
     Dosage: RE-INDUCTION THERAPY
     Route: 065
  16. METHOTREXATE [Suspect]
     Active Substance: METHOTREXATE
     Indication: B precursor type acute leukaemia
     Dosage: EARLY INTENSIFICATION
     Route: 037
  17. METHOTREXATE [Suspect]
     Active Substance: METHOTREXATE
     Dosage: 5 G/M2, CONSOLIDATION
     Route: 065
  18. METHOTREXATE [Suspect]
     Active Substance: METHOTREXATE
     Dosage: MAINTENANCE
     Route: 065
  19. ETOPOSIDE [Suspect]
     Active Substance: ETOPOSIDE
     Indication: B precursor type acute leukaemia
     Dosage: CONSOLIDATION
     Route: 065
  20. MERCAPTOPURINE [Suspect]
     Active Substance: MERCAPTOPURINE
     Indication: B precursor type acute leukaemia
     Dosage: EARLY INTENSIFICATION
     Route: 065
  21. MERCAPTOPURINE [Suspect]
     Active Substance: MERCAPTOPURINE
     Dosage: MAINTENANCE
     Route: 065
  22. VINDESINE [Suspect]
     Active Substance: VINDESINE
     Indication: B precursor type acute leukaemia
     Dosage: CONSOLIDATION
     Route: 065
  23. PREDNISONE [Concomitant]
     Active Substance: PREDNISONE
     Indication: B precursor type acute leukaemia
     Dosage: INDUCTION
  24. VINCRISTINE [Concomitant]
     Active Substance: VINCRISTINE
     Indication: B precursor type acute leukaemia
     Dosage: INDUCTION
  25. DAUNORUBICIN [Concomitant]
     Active Substance: DAUNORUBICIN
     Indication: B precursor type acute leukaemia
     Dosage: INDUCTION
  26. PEGASPARGASE [Concomitant]
     Active Substance: PEGASPARGASE
     Indication: B precursor type acute leukaemia
     Dosage: INDUCTION
  27. METHOTREXATE [Concomitant]
     Active Substance: METHOTREXATE
     Indication: B precursor type acute leukaemia
     Dosage: INDUCTION
     Route: 037
  28. DEFERASIROX [Suspect]
     Active Substance: DEFERASIROX
     Indication: Iron overload
     Dosage: 20 MG/KG/DAY
     Route: 065

REACTIONS (23)
  - Adrenal insufficiency [Recovered/Resolved]
  - Blood fibrinogen decreased [Recovered/Resolved]
  - Haemosiderosis [Recovered/Resolved]
  - Osteoporosis [Recovered/Resolved]
  - Malnutrition [Recovered/Resolved]
  - Toxicity to various agents [Recovered/Resolved]
  - Chronic kidney disease [Recovered/Resolved]
  - Embolism [Unknown]
  - Osteonecrosis [Unknown]
  - Gamma-glutamyltransferase increased [Recovered/Resolved]
  - Platelet count decreased [Recovered/Resolved]
  - Seizure [Recovered/Resolved]
  - Hypertransaminasaemia [Recovered/Resolved]
  - Citrobacter infection [Recovered/Resolved]
  - Decreased appetite [Recovered/Resolved]
  - Anaemia [Recovered/Resolved]
  - Febrile neutropenia [Recovered/Resolved]
  - Mucosal inflammation [Recovered/Resolved]
  - Sepsis [Recovered/Resolved]
  - Systemic mycosis [Unknown]
  - Pancreatitis [Unknown]
  - Blood bilirubin increased [Unknown]
  - Drug hypersensitivity [Unknown]
